FAERS Safety Report 9291034 (Version 3)
Quarter: 2013Q3

REPORT INFORMATION
  Report Type: Report from Study
  Country: BR (occurrence: BR)
  Receive Date: 20130515
  Receipt Date: 20130820
  Transmission Date: 20140515
  Serious: Yes (Other)
  Sender: FDA-Public Use
  Company Number: PHHY2013BR043001

PATIENT
  Sex: Female
  Weight: 95 kg

DRUGS (14)
  1. APRESOLIN [Suspect]
     Indication: CARDIAC FAILURE
     Dosage: 3 DF(50MG), DAILY
     Route: 048
  2. APRESOLIN [Suspect]
     Dosage: 300 MG, DAILY
  3. PARACETAMOL [Suspect]
     Indication: OSTEOARTHRITIS
     Dosage: UNK MG, DAILY
  4. MELOXICAM SANDOZ [Suspect]
     Indication: OSTEOARTHRITIS
     Dosage: UNK MG, DAILY
  5. CHONDROITIN SULFATE [Suspect]
     Indication: OSTEOARTHRITIS
     Dosage: UNK MG, DAILY
  6. METISUKFONIMETANER [Suspect]
     Indication: OSTEOARTHRITIS
     Dosage: UNK MG, DAILY
  7. GLUCOSAN [Suspect]
     Indication: OSTEOARTHRITIS
     Dosage: UNK MG, DAILY
  8. MAGNESIUM ASCORBATE [Suspect]
     Indication: OSTEOARTHRITIS
     Dosage: UNK MG, DAILY
  9. ROXFLAN [Suspect]
     Indication: HYPERTENSION
     Dosage: 1 DF(5MG), DAILY
     Route: 048
  10. CORUS H [Suspect]
     Indication: HYPERTENSION
     Dosage: 1 DF(50MG), DAILY
     Route: 048
  11. OMEPRAZOLE [Concomitant]
     Indication: GASTRITIS
     Dosage: 1 DF(10MG), DAILY
     Route: 048
  12. BROMOPRIDE [Concomitant]
     Indication: GASTRITIS
     Dosage: 1 DF(10MG), DAILY
     Route: 048
  13. SIMVASTATIN [Concomitant]
     Indication: BLOOD CHOLESTEROL INCREASED
     Dosage: 1 DF(20MG), DAILY
     Route: 048
  14. METFORMIN [Concomitant]
     Indication: DIABETES MELLITUS
     Dosage: 2 DF(50MG), BID (ONE TABLET AFTER LUNCH AND ONE TABLET AFTER DINNER)
     Route: 048

REACTIONS (7)
  - Gastritis [Unknown]
  - Ischaemia [Recovered/Resolved]
  - Blood pressure inadequately controlled [Not Recovered/Not Resolved]
  - Cataract [Recovered/Resolved]
  - Fatigue [Recovered/Resolved]
  - Dyspnoea [Recovered/Resolved]
  - Headache [Not Recovered/Not Resolved]
